FAERS Safety Report 26077853 (Version 1)
Quarter: 2025Q4

REPORT INFORMATION
  Report Type: Spontaneous
  Country: US (occurrence: US)
  Receive Date: 20251122
  Receipt Date: 20251122
  Transmission Date: 20260118
  Serious: No
  Sender: MDD OPERATIONS
  Company Number: US-MDD US Operations-MDD202509-003729

PATIENT
  Age: 75 Year
  Sex: Male

DRUGS (7)
  1. ONAPGO [Suspect]
     Active Substance: APOMORPHINE HYDROCHLORIDE
     Indication: Parkinson^s disease
     Dosage: 15-16 HOURS A DAY
     Dates: start: 20250807
  2. ONAPGO [Suspect]
     Active Substance: APOMORPHINE HYDROCHLORIDE
     Dosage: 14 TO 16 HOURS A DAY DEPENDING ON HIS DAY
     Dates: start: 202508
  3. RYTARY [Concomitant]
     Active Substance: CARBIDOPA\LEVODOPA
     Dosage: EVERY 3 HOURS
  4. RYTARY [Concomitant]
     Active Substance: CARBIDOPA\LEVODOPA
     Dosage: EVERY 4 HOURS
  5. ROPINIROLE [Concomitant]
     Active Substance: ROPINIROLE
     Dates: start: 20250925
  6. ROPINIROLE [Concomitant]
     Active Substance: ROPINIROLE
  7. CARBIDOPA LEVODOPA [Concomitant]
     Active Substance: CARBIDOPA\LEVODOPA
     Dosage: NOT PROVIDED

REACTIONS (3)
  - Malaise [Unknown]
  - Infusion site reaction [Recovered/Resolved]
  - Device breakage [Unknown]
